FAERS Safety Report 15473680 (Version 1)
Quarter: 2018Q4

REPORT INFORMATION
  Report Type: Spontaneous
  Country: CH (occurrence: CH)
  Receive Date: 20181008
  Receipt Date: 20181008
  Transmission Date: 20190205
  Serious: Yes (Hospitalization)
  Sender: FDA-Public Use
  Company Number: CH-B.I. PHARMACEUTICALS,INC./RIDGEFIELD-2018-SM-000021

PATIENT
  Age: 52 Year
  Sex: Female
  Weight: 61 kg

DRUGS (16)
  1. COLPERMIN [Concomitant]
     Active Substance: PEPPERMINT OIL
     Indication: PRODUCT USED FOR UNKNOWN INDICATION
     Dosage: COLPERMIN (PEPPERMINT OIL) P.O. 1-1-1-0
     Route: 048
  2. CIMIFEMIN [Concomitant]
     Active Substance: BLACK COHOSH
     Indication: PRODUCT USED FOR UNKNOWN INDICATION
     Dosage: CIMIFEMIN FORTE (BLACK COHOSH) TABLETS 13MG P.O. 1-0-0-0
     Route: 048
  3. NOVALGIN (METAMIZOLE SODIUM) [Concomitant]
     Active Substance: METAMIZOLE SODIUM
     Indication: PRODUCT USED FOR UNKNOWN INDICATION
     Dosage: NOVALGIN (METAMIZOLE) FILM-COATED TABLETS 500MG P.O. 1-1-1-1
     Route: 048
  4. MAGNESIUM DIASPORAL [Concomitant]
     Active Substance: MAGNESIUM
     Indication: PRODUCT USED FOR UNKNOWN INDICATION
     Dosage: MAGNESIUM DIASPORAL (MAGNESIUM) GRANULES 300 MG P.O. 1-0-1-0
     Route: 048
  5. ZOMIG [Concomitant]
     Active Substance: ZOLMITRIPTAN
     Indication: MIGRAINE
     Dosage: ZOMIG (ZOLMITRIPTAN) FILM-COATED TABLETS 2.5 MG P.O IN THE EVENT OF A MIGRAINE MAX 1X DAILY
     Route: 048
  6. METHADONE [Concomitant]
     Active Substance: METHADONE HYDROCHLORIDE
     Indication: CHRONIC IDIOPATHIC PAIN SYNDROME
     Dosage: 20 MG PER DAY THROUGH A TEMPORARY ANALGESIA PUMP DUE TO CHRONIC CERVICAL SPONDYLOGENIC MYELOPATHY
     Route: 037
  7. PANTOZOL [Concomitant]
     Active Substance: PANTOPRAZOLE SODIUM
     Indication: PRODUCT USED FOR UNKNOWN INDICATION
     Dosage: PANTOZOL (PANTOPRAZOLE) FILM-COATED TABLETS 20MG P.O. 1-0-1-0 SINCE 29/06/2018
     Route: 048
     Dates: start: 20180629
  8. ZOMIG [Concomitant]
     Active Substance: ZOLMITRIPTAN
     Indication: MIGRAINE
     Dosage: ZOMIG (ZOLMITRIPTAN) NASAL SPRAY 2.5MG NASALLY IN THE EVENT OF A MIGRAINE MAX 3X DAILY
     Route: 045
  9. FENTANYL. [Concomitant]
     Active Substance: FENTANYL
     Indication: CHRONIC IDIOPATHIC PAIN SYNDROME
     Dosage: FENTANYL MAXIMUM OF 20 MG PER DAY
     Route: 037
  10. PRIMPERAN [Concomitant]
     Active Substance: METOCLOPRAMIDE HYDROCHLORIDE
     Indication: NAUSEA
     Dosage: PRIMPERAN (METOCLOPRAMIDE) TABLETS 10MG IN THE EVENT OF NAUSEA MAX 3X DAILY
     Route: 065
  11. CATAPRESAN [Suspect]
     Active Substance: CLONIDINE
     Indication: PRODUCT USED FOR UNKNOWN INDICATION
     Dosage: 450 UG PER DAY
     Route: 065
  12. MORPHIN HCL [Suspect]
     Active Substance: MORPHINE HYDROCHLORIDE
     Indication: CHRONIC IDIOPATHIC PAIN SYNDROME
     Dosage: FOR THE PAST TEN YEARS (SINCE ABOUT 2008),  1 MG/ML UP TO A MAXIMUM OF 175 MG PER DAY
     Route: 037
     Dates: start: 2008
  13. BULBOID [Concomitant]
     Indication: CONSTIPATION
     Dosage: BULBOID (GLYCEROL) RECTAL SUPPOSITORY IN THE EVENT OF CONSTIPATION MAX 2X DAILY
     Route: 054
  14. BECOZYME [Concomitant]
     Active Substance: VITAMINS
     Indication: PRODUCT USED FOR UNKNOWN INDICATION
     Dosage: BECOZYME FORTE (VITAMIN B COMPLEX) SUGAR-COATED PILL P.O. 1-0-0-0
     Route: 048
  15. VITAMIN B2 STREULI [Concomitant]
     Indication: PRODUCT USED FOR UNKNOWN INDICATION
     Dosage: VITAMIN B2 STREULI (VITAMIN B2) SUGAR-COATED PILL 10MG P.O. 1-0-0-0
     Route: 048
  16. BUSCOPAN [Concomitant]
     Active Substance: BUTYLSCOPOLAMINE BROMIDE
     Indication: PRODUCT USED FOR UNKNOWN INDICATION
     Dosage: BUSCOPAN (BUTYLSCOPOLAMINE) SUGAR-COATED PILL 10MG MAX 1X DAILY
     Route: 065

REACTIONS (3)
  - Weight decreased [Unknown]
  - Constipation [Unknown]
  - Abdominal pain [Unknown]

NARRATIVE: CASE EVENT DATE: 20180903
